FAERS Safety Report 6582448-2 (Version None)
Quarter: 2010Q1

REPORT INFORMATION
  Report Type: 
  Country: None (occurrence: None)
  Receive Date: 20100216
  Receipt Date: 20100204
  Transmission Date: 20100710
  Serious: Yes (Hospitalization, Other)
  Sender: FDA-Public Use
  Company Number: PHEH2009US18082

PATIENT
  Sex: Female

DRUGS (2)
  1. EXJADE [Suspect]
     Indication: SERUM FERRITIN INCREASED
     Dosage: 250 MG, BID
     Route: 048
     Dates: start: 20090715
  2. EXJADE [Suspect]
     Dosage: UNK

REACTIONS (2)
  - CYTOREDUCTIVE SURGERY [None]
  - MALIGNANT NEOPLASM PROGRESSION [None]
